FAERS Safety Report 20123706 (Version 1)
Quarter: 2021Q4

REPORT INFORMATION
  Report Type: Report from Study
  Country: US (occurrence: US)
  Receive Date: 20211129
  Receipt Date: 20211129
  Transmission Date: 20220304
  Serious: Yes (Other)
  Sender: FDA-Public Use
  Company Number: US-GILEAD-2021-0557336

PATIENT
  Sex: Male

DRUGS (15)
  1. AZTREONAM LYSINE [Suspect]
     Active Substance: AZTREONAM LYSINE
     Indication: Cystic fibrosis
     Dosage: 75 MG, TID, CONTINUOUS, NO CYCLING
     Route: 055
  2. DOXYCYCLINE [Concomitant]
     Active Substance: DOXYCYCLINE
  3. ALBUTOL [SALBUTAMOL SULFATE] [Concomitant]
  4. PREDNISONE [Concomitant]
     Active Substance: PREDNISONE
  5. VITAMIN C [Concomitant]
     Active Substance: ASCORBIC ACID
  6. CALCIUM [Concomitant]
     Active Substance: CALCIUM
  7. VITAMIN D NOS [Concomitant]
     Active Substance: VITAMIN D NOS
  8. PULMOZYME [Concomitant]
     Active Substance: DORNASE ALFA
  9. FLUTICASONE PROPIONATE [Concomitant]
     Active Substance: FLUTICASONE PROPIONATE
  10. CIPRO [Concomitant]
     Active Substance: CIPROFLOXACIN HYDROCHLORIDE
  11. VITAMIN K [Concomitant]
     Active Substance: PHYTONADIONE
  12. QVAR [Concomitant]
     Active Substance: BECLOMETHASONE DIPROPIONATE
  13. AZITHROMYCIN [Concomitant]
     Active Substance: AZITHROMYCIN
  14. VITAMINS NOS [Concomitant]
     Active Substance: VITAMINS
  15. SODIUM CHLORIDE [Concomitant]
     Active Substance: SODIUM CHLORIDE

REACTIONS (2)
  - Cystic fibrosis [Not Recovered/Not Resolved]
  - Off label use [Unknown]
